FAERS Safety Report 8771945 (Version 2)
Quarter: 2012Q4

REPORT INFORMATION
  Report Type: 
  Country: GB (occurrence: GB)
  Receive Date: 20120906
  Receipt Date: 20121228
  Transmission Date: 20130627
  Serious: Yes (Other)
  Sender: FDA-Public Use
  Company Number: GB-B.I. PHARMACEUTICALS,INC./RIDGEFIELD-2012-UK-01148UK

PATIENT
  Age: 53 Year
  Sex: Male

DRUGS (1)
  1. TRAJENTA [Suspect]
     Indication: DIABETES MELLITUS
     Dosage: 5 mg
     Route: 048
     Dates: start: 20120718, end: 20120726

REACTIONS (2)
  - Gingival pain [Recovered/Resolved]
  - Rash [Recovered/Resolved]
